FAERS Safety Report 12010811 (Version 2)
Quarter: 2016Q2

REPORT INFORMATION
  Report Type: Report from Study
  Country: DE (occurrence: DE)
  Receive Date: 20160205
  Receipt Date: 20160505
  Transmission Date: 20160815
  Serious: Yes (Death)
  Sender: FDA-Public Use
  Company Number: PHHO2016DE001786

PATIENT
  Sex: Female

DRUGS (1)
  1. CGP 57148B [Suspect]
     Active Substance: IMATINIB MESYLATE
     Indication: GLIOBLASTOMA
     Dosage: UNK
     Route: 065
     Dates: start: 2003, end: 200801

REACTIONS (1)
  - Chronic obstructive pulmonary disease [Fatal]
